FAERS Safety Report 5773789-7 (Version None)
Quarter: 2008Q2

REPORT INFORMATION
  Report Type: 
  Country: None (occurrence: None)
  Receive Date: 20080616
  Receipt Date: 20080611
  Transmission Date: 20081010
  Serious: Yes (Other)
  Sender: FDA-Public Use
  Company Number: A0725230A

PATIENT
  Age: 51 Year
  Sex: Female

DRUGS (7)
  1. ALLI [Suspect]
     Indication: WEIGHT LOSS DIET
     Route: 048
     Dates: start: 20070622
  2. MAGNESIUM [Concomitant]
  3. MSM WITH GLUCOSAMINE [Concomitant]
  4. VITAMIN B-12 [Concomitant]
  5. VITAMIN E [Concomitant]
  6. MULTI-VITAMIN [Concomitant]
  7. VITAMIN B COMPLEX CAP [Concomitant]

REACTIONS (8)
  - ABDOMINAL DISTENSION [None]
  - BLOOD CALCIUM INCREASED [None]
  - DRUG INEFFECTIVE [None]
  - HYPERTENSION [None]
  - INFECTION [None]
  - MUSCLE SPASMS [None]
  - NEPHROLITHIASIS [None]
  - PAIN [None]
